FAERS Safety Report 12797758 (Version 1)
Quarter: 2016Q3

REPORT INFORMATION
  Report Type: Spontaneous
  Country: US (occurrence: US)
  Receive Date: 20160929
  Receipt Date: 20160929
  Transmission Date: 20161109
  Serious: Yes (Other)
  Sender: FDA-Public Use
  Company Number: None

PATIENT
  Age: 51 Year
  Sex: Female
  Weight: 62.1 kg

DRUGS (8)
  1. CHORIONIC GONADOTROPIN, LYOPHILIZED WELLS PHARMACY NETWORK [Suspect]
     Active Substance: GONADOTROPHIN, CHORIONIC
     Indication: WEIGHT DECREASED
     Dosage: OTHER STRENGTH:UNIT;QUANTITY:1 20 UNIT INJECTION;?
     Route: 058
     Dates: start: 20160917, end: 20160929
  2. MULTIVITAMIN [Concomitant]
     Active Substance: VITAMINS
  3. ADRENAVIV [Concomitant]
  4. FISH OIL [Concomitant]
     Active Substance: FISH OIL
  5. DHEA [Concomitant]
     Active Substance: PRASTERONE
  6. VITAMIN K WITH D3 [Concomitant]
  7. PROGESTERONE. [Concomitant]
     Active Substance: PROGESTERONE
  8. LEVOTHYROXINE. [Concomitant]
     Active Substance: LEVOTHYROXINE

REACTIONS (6)
  - Tinnitus [None]
  - Balance disorder [None]
  - Vision blurred [None]
  - Chills [None]
  - Headache [None]
  - Nausea [None]

NARRATIVE: CASE EVENT DATE: 20160917
